FAERS Safety Report 7812453-7 (Version None)
Quarter: 2011Q4

REPORT INFORMATION
  Report Type: 
  Country: None (occurrence: None)
  Receive Date: 20111013
  Receipt Date: 20111006
  Transmission Date: 20120403
  Serious: Yes (Hospitalization, Disabling)
  Sender: FDA-Public Use
  Company Number: US-MERCK-1108USA01357

PATIENT
  Age: 53 Year
  Sex: Female

DRUGS (13)
  1. FOSAMAX PLUS D [Suspect]
     Indication: OSTEOPENIA
     Route: 065
     Dates: start: 20010101, end: 20080501
  2. VITAMINS (UNSPECIFIED) [Concomitant]
     Route: 065
     Dates: start: 20010101
  3. OMEGA-3 MARINE TRIGLYCERIDES [Concomitant]
     Route: 065
     Dates: start: 20010101
  4. GLUCOSAMINE [Concomitant]
     Route: 065
     Dates: start: 20010101
  5. NEXIUM [Concomitant]
     Route: 065
     Dates: start: 20060815, end: 20071119
  6. FOSAMAX PLUS D [Suspect]
     Indication: OSTEOPOROSIS
     Route: 065
     Dates: start: 20010101, end: 20080501
  7. RECLAST [Concomitant]
     Indication: OSTEOPENIA
     Route: 051
     Dates: start: 20090101
  8. OS-CAL [Concomitant]
     Route: 065
     Dates: start: 20010101
  9. CORTICOSTEROIDS (UNSPECIFIED) [Concomitant]
     Route: 065
     Dates: start: 20000101, end: 20090101
  10. FOSAMAX [Suspect]
     Indication: OSTEOPENIA
     Route: 048
     Dates: start: 20010101, end: 20080101
  11. VITAMIN D (UNSPECIFIED) [Concomitant]
     Route: 065
     Dates: start: 20010101
  12. FOSAMAX [Suspect]
     Indication: OSTEOPOROSIS
     Route: 048
     Dates: start: 20010101, end: 20080101
  13. RECLAST [Concomitant]
     Indication: OSTEOPOROSIS
     Route: 051
     Dates: start: 20090101

REACTIONS (11)
  - FEMUR FRACTURE [None]
  - LOW TURNOVER OSTEOPATHY [None]
  - STRESS FRACTURE [None]
  - BURSITIS [None]
  - BLOOD CHOLESTEROL INCREASED [None]
  - ORAL DISORDER [None]
  - OSTEOPOROSIS [None]
  - IMPAIRED HEALING [None]
  - NEPHROLITHIASIS [None]
  - FALL [None]
  - HYPOTHYROIDISM [None]
